FAERS Safety Report 9304493 (Version 1)
Quarter: 2013Q2

REPORT INFORMATION
  Report Type: Spontaneous
  Country: SE (occurrence: SE)
  Receive Date: 20130523
  Receipt Date: 20130523
  Transmission Date: 20140414
  Serious: Yes (Other)
  Sender: FDA-Public Use
  Company Number: SE-AMGEN-SWESP2013035184

PATIENT
  Age: 90 Year
  Sex: Female

DRUGS (3)
  1. PROLIA [Suspect]
     Indication: OSTEOPOROSIS
     Dosage: UNK
     Dates: start: 201111
  2. CALCIUM [Concomitant]
  3. ALVEDON [Concomitant]

REACTIONS (3)
  - Borrelia infection [Not Recovered/Not Resolved]
  - Calcinosis [Recovering/Resolving]
  - Local swelling [Recovering/Resolving]
